FAERS Safety Report 18627725 (Version 1)
Quarter: 2020Q4

REPORT INFORMATION
  Report Type: Spontaneous
  Country: US (occurrence: US)
  Receive Date: 20201216
  Receipt Date: 20201216
  Transmission Date: 20210114
  Serious: Yes (Life-Threatening, Hospitalization)
  Sender: FDA-Public Use
  Company Number: None

PATIENT
  Age: 56 Year
  Sex: Male
  Weight: 119.25 kg

DRUGS (11)
  1. BYDUREON BCISE [Suspect]
     Active Substance: EXENATIDE
     Indication: TYPE 2 DIABETES MELLITUS
     Dates: start: 20200115, end: 20200213
  2. LISPRO INSULIN [Concomitant]
     Active Substance: INSULIN LISPRO
  3. ELIQUIS 5 [Concomitant]
  4. ABILIFY [Concomitant]
     Active Substance: ARIPIPRAZOLE
  5. RITALIN 20 [Concomitant]
  6. OMEGA 3 [Concomitant]
     Active Substance: OMEGA-3 FATTY ACIDS
  7. HUMALOG [Concomitant]
     Active Substance: INSULIN LISPRO
  8. COENZYME Q10 [Concomitant]
     Active Substance: DIETARY SUPPLEMENT\UBIDECARENONE
  9. EFFEXOR [Concomitant]
     Active Substance: VENLAFAXINE HYDROCHLORIDE
  10. SEROQUEL 200 [Concomitant]
  11. METFORMIN [Concomitant]
     Active Substance: METFORMIN HYDROCHLORIDE

REACTIONS (2)
  - Fournier^s gangrene [None]
  - Septic shock [None]

NARRATIVE: CASE EVENT DATE: 20200214
